FAERS Safety Report 24070682 (Version 1)
Quarter: 2024Q3

REPORT INFORMATION
  Report Type: Report from Study
  Country: US (occurrence: US)
  Receive Date: 20240710
  Receipt Date: 20240710
  Transmission Date: 20241017
  Serious: No
  Sender: ROCHE
  Company Number: US-ROCHE-3568985

PATIENT
  Age: 61 Year
  Sex: Female

DRUGS (9)
  1. VABYSMO [Suspect]
     Active Substance: FARICIMAB\FARICIMAB-SVOA
     Indication: Retinal vein occlusion
     Route: 050
  2. VABYSMO [Suspect]
     Active Substance: FARICIMAB\FARICIMAB-SVOA
     Indication: Macular oedema
  3. VABYSMO [Suspect]
     Active Substance: FARICIMAB\FARICIMAB-SVOA
     Indication: Cataract nuclear
  4. LUCENTIS [Suspect]
     Active Substance: RANIBIZUMAB
     Indication: Retinal vein occlusion
     Route: 065
  5. LUCENTIS [Suspect]
     Active Substance: RANIBIZUMAB
     Indication: Macular oedema
  6. LUCENTIS [Suspect]
     Active Substance: RANIBIZUMAB
     Indication: Cataract nuclear
  7. AVASTIN [Suspect]
     Active Substance: BEVACIZUMAB
     Indication: Retinal vein occlusion
     Route: 065
  8. AVASTIN [Suspect]
     Active Substance: BEVACIZUMAB
     Indication: Macular oedema
  9. AVASTIN [Suspect]
     Active Substance: BEVACIZUMAB
     Indication: Cataract nuclear

REACTIONS (3)
  - Off label use [Unknown]
  - Off label use [Unknown]
  - Oedema [Unknown]
